FAERS Safety Report 14077768 (Version 2)
Quarter: 2017Q4

REPORT INFORMATION
  Report Type: Report from Study
  Country: None (occurrence: US)
  Receive Date: 20171012
  Receipt Date: 20171026
  Transmission Date: 20180321
  Serious: Yes (Hospitalization, Other)
  Sender: FDA-Public Use
  Company Number: US-ABBVIE-17K-163-2123326-00

PATIENT
  Sex: Female

DRUGS (2)
  1. HUMIRA [Suspect]
     Active Substance: ADALIMUMAB
     Route: 058
     Dates: end: 2013
  2. HUMIRA [Suspect]
     Active Substance: ADALIMUMAB
     Indication: PSORIATIC ARTHROPATHY
     Route: 058

REACTIONS (10)
  - Pneumonia legionella [Unknown]
  - Muscle atrophy [Unknown]
  - Diabetes mellitus [Unknown]
  - Renal failure [Unknown]
  - Myasthenia gravis [Unknown]
  - Scab [Unknown]
  - Psoriasis [Unknown]
  - Muscle swelling [Unknown]
  - Amnesia [Unknown]
  - Psoriatic arthropathy [Unknown]
